FAERS Safety Report 8562048-5 (Version None)
Quarter: 2012Q3

REPORT INFORMATION
  Report Type: 
  Country: None (occurrence: None)
  Receive Date: 20120802
  Receipt Date: 20120703
  Transmission Date: 20120928
  Serious: No
  Sender: FDA-Public Use
  Company Number: US-AMGEN-USASP2012041237

PATIENT
  Sex: Male

DRUGS (1)
  1. ENBREL [Suspect]
     Indication: RHEUMATOID ARTHRITIS
     Dosage: 50 MG, EVERY 7 TO 10 DAYS
     Route: 058
     Dates: start: 20080301

REACTIONS (2)
  - INJECTION SITE PAIN [None]
  - SKIN TIGHTNESS [None]
